FAERS Safety Report 16307182 (Version 1)
Quarter: 2019Q2

REPORT INFORMATION
  Report Type: Spontaneous
  Country: US (occurrence: US)
  Receive Date: 20190514
  Receipt Date: 20190514
  Transmission Date: 20190711
  Serious: Yes (Other)
  Sender: FDA-Public Use
  Company Number: US-AUROBINDO-AUR-APL-2019-025618

PATIENT

DRUGS (10)
  1. DASATINIB. [Suspect]
     Active Substance: DASATINIB
     Indication: PERIARTICULAR DISORDER
     Dosage: UNK
     Route: 065
  2. TOFACITINIB [Suspect]
     Active Substance: TOFACITINIB
     Indication: PERIARTICULAR DISORDER
     Dosage: UNK
     Route: 065
  3. PREDNISONE. [Suspect]
     Active Substance: PREDNISONE
     Indication: MUSCULOSKELETAL DISORDER
     Dosage: 5 MILLIGRAM, DAILY
     Route: 065
  4. HYDROXYCHLOROQUINE [Concomitant]
     Active Substance: HYDROXYCHLOROQUINE
     Indication: PERIARTICULAR DISORDER
     Dosage: UNK
     Route: 065
  5. TOFACITINIB [Suspect]
     Active Substance: TOFACITINIB
     Indication: MUSCULOSKELETAL DISORDER
  6. PREDNISONE. [Suspect]
     Active Substance: PREDNISONE
     Indication: PERIARTICULAR DISORDER
     Dosage: UNK
     Route: 065
  7. IMATINIB. [Suspect]
     Active Substance: IMATINIB MESYLATE
     Indication: PERIARTICULAR DISORDER
     Dosage: UNK
     Route: 065
  8. IMATINIB. [Suspect]
     Active Substance: IMATINIB MESYLATE
     Indication: MUSCULOSKELETAL DISORDER
  9. DASATINIB. [Suspect]
     Active Substance: DASATINIB
     Indication: MUSCULOSKELETAL DISORDER
  10. HYDROXYCHLOROQUINE [Concomitant]
     Active Substance: HYDROXYCHLOROQUINE
     Indication: MUSCULOSKELETAL DISORDER

REACTIONS (3)
  - Chronic myeloid leukaemia [Recovered/Resolved]
  - Pleural effusion [Unknown]
  - Drug ineffective [Unknown]
